FAERS Safety Report 5905362-1 (Version None)
Quarter: 2008Q4

REPORT INFORMATION
  Report Type: 
  Country: None (occurrence: None)
  Receive Date: 20081001
  Receipt Date: 20080919
  Transmission Date: 20090506
  Serious: Yes (Hospitalization, Other)
  Sender: FDA-Public Use
  Company Number: US-PFIZER INC-2008079787

PATIENT
  Sex: Male
  Weight: 70.8 kg

DRUGS (6)
  1. LYRICA [Suspect]
     Dates: start: 20080101, end: 20080901
  2. WARFARIN SODIUM [Suspect]
  3. LISINOPRIL [Concomitant]
     Dosage: DAILY DOSE:40MG
     Dates: end: 20080918
  4. METOPROLOL TARTRATE [Concomitant]
  5. DIGOXIN [Concomitant]
     Dosage: DAILY DOSE:.125MG
  6. ZOCOR [Concomitant]
     Dosage: DAILY DOSE:40MG
     Dates: end: 20080918

REACTIONS (5)
  - BLOOD PRESSURE DECREASED [None]
  - NERVOUSNESS [None]
  - RENAL FAILURE [None]
  - SYNCOPE [None]
  - THERAPEUTIC AGENT TOXICITY [None]
